FAERS Safety Report 8472706-9 (Version None)
Quarter: 2012Q2

REPORT INFORMATION
  Report Type: 
  Country: None (occurrence: None)
  Receive Date: 20120627
  Receipt Date: 20120619
  Transmission Date: 20120825
  Serious: Yes (Death, Life-Threatening, Hospitalization, Other)
  Sender: FDA-Public Use
  Company Number: PHHO2011DE021610

PATIENT
  Sex: Male

DRUGS (6)
  1. CYCLOSPORINE [Suspect]
     Indication: RENAL TRANSPLANT
     Dosage: 400 MG, UNK
     Dates: start: 20111211
  2. MYCOPHENOLIC ACID [Suspect]
     Indication: RENAL TRANSPLANT
     Dosage: 2880 MG, UNK
     Route: 048
     Dates: start: 20111211
  3. NO TREATMENT RECEIVED [Suspect]
     Indication: RENAL TRANSPLANT
     Dosage: NO TREATMENT
  4. HYDROCORTISONE ACETATE [Concomitant]
     Indication: RENAL TRANSPLANT
     Dosage: 200 MG, QD
     Dates: start: 20111219
  5. SIMULECT [Suspect]
     Indication: RENAL TRANSPLANT
     Dosage: 20 MG, UNK
     Dates: start: 20111211, end: 20111211
  6. PREDNISONE TAB [Suspect]
     Indication: RENAL TRANSPLANT
     Dosage: 80 MG, UNK
     Dates: start: 20111211

REACTIONS (10)
  - RENAL FAILURE [None]
  - INTESTINAL ISCHAEMIA [None]
  - INTESTINAL GANGRENE [None]
  - PERITONITIS [None]
  - CONCOMITANT DISEASE PROGRESSION [None]
  - LARGE INTESTINE PERFORATION [None]
  - SEPSIS [None]
  - SEPTIC SHOCK [None]
  - RENAL VESSEL DISORDER [None]
  - MEGACOLON [None]
